APPROVED DRUG PRODUCT: SULFADIAZINE
Active Ingredient: SULFADIAZINE
Strength: 300MG
Dosage Form/Route: TABLET;ORAL
Application: N004125 | Product #005
Applicant: ABBVIE INC
Approved: Approved Prior to Jan 1, 1982 | RLD: No | RS: No | Type: DISCN